FAERS Safety Report 8977684 (Version 2)
Quarter: 2013Q4

REPORT INFORMATION
  Report Type: Spontaneous
  Country: US (occurrence: US)
  Receive Date: 20121220
  Receipt Date: 20131231
  Transmission Date: 20140711
  Serious: No
  Sender: FDA-Public Use
  Company Number: US-PFIZER INC-2012320702

PATIENT
  Sex: Female

DRUGS (5)
  1. SEPTRA [Suspect]
     Dosage: UNK
  2. BACTRIM [Suspect]
     Dosage: UNK
  3. ROCEPHIN [Suspect]
     Dosage: UNK (GIVEN AS SHOT FORM)
  4. B-12 [Suspect]
     Dosage: UNK
  5. SPECTRACEF [Suspect]
     Dosage: UNK

REACTIONS (2)
  - Drug hypersensitivity [Unknown]
  - Urticaria [Unknown]
